FAERS Safety Report 9393259 (Version 4)
Quarter: 2013Q4

REPORT INFORMATION
  Report Type: Spontaneous
  Country: US (occurrence: US)
  Receive Date: 20130710
  Receipt Date: 20131024
  Transmission Date: 20140711
  Serious: Yes (Other)
  Sender: FDA-Public Use
  Company Number: US-PFIZER INC-2013202035

PATIENT
  Age: 49 Year
  Sex: Female
  Weight: 83.9 kg

DRUGS (3)
  1. LYRICA [Suspect]
     Indication: NEURALGIA
     Dosage: 600 MG, 2X/DAY
     Route: 048
     Dates: start: 200701
  2. LYRICA [Suspect]
     Dosage: 600 MG, 2X/DAY
     Route: 048
  3. MORPHINE [Suspect]
     Indication: NEURALGIA
     Dosage: UNK
     Dates: start: 2009

REACTIONS (4)
  - Off label use [Unknown]
  - Obesity [Unknown]
  - Pain [Unknown]
  - Drug effect incomplete [Unknown]
